FAERS Safety Report 7787446-9 (Version None)
Quarter: 2011Q3

REPORT INFORMATION
  Report Type: 
  Country: None (occurrence: None)
  Receive Date: 20110929
  Receipt Date: 20110927
  Transmission Date: 20111222
  Serious: Yes (Death, Hospitalization, Congenital Anomaly, Other)
  Sender: FDA-Public Use
  Company Number: US-ABBOTT-11P-163-0858071-00

PATIENT
  Sex: Female

DRUGS (6)
  1. SYNTHROID [Concomitant]
     Indication: HYPOTHYROIDISM
  2. MERCAPTOPURINE [Concomitant]
     Indication: CROHN'S DISEASE
  3. LORAZEPAM [Concomitant]
     Indication: ANXIETY
  4. BUPROPION HCL [Concomitant]
     Indication: DEPRESSION
  5. HUMIRA [Suspect]
     Indication: CROHN'S DISEASE
     Dates: start: 20090101, end: 20110923
  6. LANSOPRAZOLE [Concomitant]
     Indication: GASTROOESOPHAGEAL REFLUX DISEASE

REACTIONS (10)
  - OBSTRUCTIVE AIRWAYS DISORDER [None]
  - LIP AND/OR ORAL CAVITY CANCER STAGE IV [None]
  - NEOPLASM MALIGNANT [None]
  - STOMATITIS [None]
  - BRAIN DEATH [None]
  - SWELLING FACE [None]
  - DYSPNOEA [None]
  - CARDIO-RESPIRATORY ARREST [None]
  - LOCAL SWELLING [None]
  - NEOPLASM [None]
